FAERS Safety Report 11420777 (Version 5)
Quarter: 2016Q1

REPORT INFORMATION
  Report Type: Spontaneous
  Country: US (occurrence: US)
  Receive Date: 20150826
  Receipt Date: 20160106
  Transmission Date: 20160525
  Serious: No
  Sender: FDA-Public Use
  Company Number: US-PFIZER INC-2015279414

PATIENT
  Age: 38 Year
  Sex: Female
  Weight: 74.1 kg

DRUGS (1)
  1. ELELYSO [Suspect]
     Active Substance: TALIGLUCERASE ALFA
     Indication: GAUCHER^S DISEASE
     Dosage: 4400 UNITS EVERY 2 WEEKS
     Route: 042
     Dates: start: 20150122, end: 20150804

REACTIONS (5)
  - Fatigue [Unknown]
  - Condition aggravated [Unknown]
  - Arthralgia [Unknown]
  - Bone pain [Unknown]
  - Condition aggravated [Unknown]

NARRATIVE: CASE EVENT DATE: 201508
